FAERS Safety Report 8182817-3 (Version None)
Quarter: 2012Q1

REPORT INFORMATION
  Report Type: 
  Country: None (occurrence: None)
  Receive Date: 20120305
  Receipt Date: 20120110
  Transmission Date: 20120608
  Serious: No
  Sender: FDA-Public Use
  Company Number: US-MYLANLABS-2012S1000749

PATIENT
  Age: 24 Year
  Sex: Female

DRUGS (2)
  1. CLINDAMYCIN AND BENZOYL PEROXIDE [Suspect]
     Route: 061
     Dates: start: 20120102, end: 20120102
  2. CLINDAMYCIN AND BENZOYL PEROXIDE [Suspect]
     Indication: ACNE
     Route: 061
     Dates: start: 20111231, end: 20111231

REACTIONS (5)
  - OCULAR HYPERAEMIA [None]
  - SKIN BURNING SENSATION [None]
  - RASH [None]
  - SKIN EXFOLIATION [None]
  - EYE SWELLING [None]
